FAERS Safety Report 15698972 (Version 1)
Quarter: 2018Q4

REPORT INFORMATION
  Report Type: Spontaneous
  Country: US (occurrence: US)
  Receive Date: 20181207
  Receipt Date: 20181207
  Transmission Date: 20190205
  Serious: No
  Sender: FDA-Public Use
  Company Number: None

PATIENT
  Age: 35 Year
  Sex: Female
  Weight: 63 kg

DRUGS (2)
  1. OMEPRSZLOLE [Concomitant]
  2. NORETHINDRONE 5 MG TABLETS [Suspect]
     Active Substance: NORETHINDRONE
     Indication: DYSPEPSIA
     Dosage: ?          QUANTITY:1 TABLET(S);?
     Route: 048
     Dates: start: 20181123, end: 20181205

REACTIONS (7)
  - Breast pain [None]
  - Amenorrhoea [None]
  - Insomnia [None]
  - Breast discolouration [None]
  - Mood swings [None]
  - Weight increased [None]
  - Pain [None]

NARRATIVE: CASE EVENT DATE: 20181125
